FAERS Safety Report 5159078-2 (Version None)
Quarter: 2006Q4

REPORT INFORMATION
  Report Type: 
  Country: None (occurrence: None)
  Receive Date: 20061128
  Receipt Date: 20060309
  Transmission Date: 20070319
  Serious: Yes (Other)
  Sender: FDA-Public Use
  Company Number: TH-BOEHRINGER INGELHEIM GMBH, GERMANY-2006-DE-01315GD

PATIENT

DRUGS (2)
  1. NEVIRAPINE [Suspect]
     Route: 015
  2. ZIDOVUDINE [Suspect]
     Route: 015

REACTIONS (3)
  - HUMAN IMMUNODEFICIENCY VIRUS TRANSMISSION [None]
  - PREMATURE BABY [None]
  - SMALL FOR DATES BABY [None]
